FAERS Safety Report 12771625 (Version 1)
Quarter: 2016Q3

REPORT INFORMATION
  Report Type: Spontaneous
  Country: US (occurrence: US)
  Receive Date: 20160922
  Receipt Date: 20160922
  Transmission Date: 20161109
  Serious: No
  Sender: FDA-Public Use
  Company Number: US-AMGEN-USASP2016102510

PATIENT
  Age: 65 Year
  Sex: Female

DRUGS (1)
  1. NEUPOGEN [Suspect]
     Active Substance: FILGRASTIM
     Indication: CYCLIC NEUTROPENIA
     Dosage: UNK UNK, EVERY FIVE DAYS
     Route: 065

REACTIONS (3)
  - Pyrexia [Unknown]
  - Activities of daily living impaired [Unknown]
  - Chills [Unknown]
